FAERS Safety Report 9504058 (Version 1)
Quarter: 2013Q3

REPORT INFORMATION
  Report Type: Spontaneous
  Country: US (occurrence: None)
  Receive Date: 20130905
  Receipt Date: 20130905
  Transmission Date: 20140515
  Serious: Yes (Death)
  Sender: FDA-Public Use
  Company Number: None

PATIENT
  Age: 80 Year
  Sex: Male
  Weight: 48.08 kg

DRUGS (1)
  1. XARELTO [Suspect]
     Indication: ATRIAL FIBRILLATION
     Dosage: 1 PILL  QD  ORAL?AT LEAST 1 YEAR
     Route: 048

REACTIONS (3)
  - Bradycardia [None]
  - Pulse absent [None]
  - Cerebral haemorrhage [None]
